FAERS Safety Report 15866566 (Version 2)
Quarter: 2019Q2

REPORT INFORMATION
  Report Type: Report from Study
  Country: US (occurrence: US)
  Receive Date: 20190125
  Receipt Date: 20190607
  Transmission Date: 20190711
  Serious: No
  Sender: FDA-Public Use
  Company Number: PHEH2019US003412

PATIENT
  Sex: Female

DRUGS (1)
  1. GILENYA [Suspect]
     Active Substance: FINGOLIMOD HYDROCHLORIDE
     Indication: MULTIPLE SCLEROSIS
     Dosage: 0.5 MG, QD
     Route: 048
     Dates: start: 20190117, end: 201903

REACTIONS (4)
  - Feeling abnormal [Not Recovered/Not Resolved]
  - Condition aggravated [Recovering/Resolving]
  - Atrioventricular block first degree [Unknown]
  - Drug ineffective [Unknown]
